FAERS Safety Report 4687764-7 (Version None)
Quarter: 2005Q2

REPORT INFORMATION
  Report Type: 
  Country: None (occurrence: None)
  Receive Date: 20050610
  Receipt Date: 20050310
  Transmission Date: 20051028
  Serious: Yes (Hospitalization, Other)
  Sender: FDA-Public Use
  Company Number: US-MERCK-0503USA01894

PATIENT
  Age: 57 Year
  Sex: Female
  Weight: 59 kg

DRUGS (17)
  1. VIOXX [Suspect]
     Indication: ARTHRITIS
     Route: 048
     Dates: start: 20020101, end: 20040901
  2. VIOXX [Suspect]
     Route: 048
     Dates: start: 20020801, end: 20030909
  3. VIOXX [Suspect]
     Route: 048
     Dates: start: 20030909, end: 20030101
  4. VIOXX [Suspect]
     Route: 048
     Dates: start: 20040106
  5. VIOXX [Suspect]
     Indication: NECK PAIN
     Route: 048
     Dates: start: 20020101, end: 20040901
  6. VIOXX [Suspect]
     Route: 048
     Dates: start: 20020801, end: 20030909
  7. VIOXX [Suspect]
     Route: 048
     Dates: start: 20030909, end: 20030101
  8. VIOXX [Suspect]
     Route: 048
     Dates: start: 20040106
  9. PREMARIN [Concomitant]
     Route: 048
  10. INDERAL [Concomitant]
     Route: 065
  11. NEURONTIN [Concomitant]
     Route: 048
  12. NEURONTIN [Concomitant]
     Route: 048
  13. PREVACID [Concomitant]
     Route: 048
  14. VICODIN [Concomitant]
     Indication: PAIN
     Route: 065
  15. TYLENOL (CAPLET) [Concomitant]
     Route: 048
  16. ASPIRIN [Concomitant]
     Route: 048
  17. RELAFEN [Concomitant]
     Indication: NECK PAIN
     Route: 048
     Dates: start: 20030101, end: 20040106

REACTIONS (24)
  - APHASIA [None]
  - ASTHENIA [None]
  - CARDIOVASCULAR DISORDER [None]
  - CEREBROVASCULAR ACCIDENT [None]
  - CONVULSION [None]
  - DIARRHOEA [None]
  - DIVERTICULUM [None]
  - DYSARTHRIA [None]
  - EMOTIONAL DISTRESS [None]
  - FACIAL PALSY [None]
  - GASTROOESOPHAGEAL REFLUX DISEASE [None]
  - GRAND MAL CONVULSION [None]
  - HEADACHE [None]
  - HOT FLUSH [None]
  - INSOMNIA [None]
  - INTESTINAL ISCHAEMIA [None]
  - LIPOMA [None]
  - MENTAL STATUS CHANGES [None]
  - MYOCARDIAL INFARCTION [None]
  - NECK PAIN [None]
  - NEUROLOGICAL SYMPTOM [None]
  - OESOPHAGEAL STENOSIS [None]
  - SKIN LESION [None]
  - SYNCOPE [None]
